FAERS Safety Report 14033091 (Version 4)
Quarter: 2018Q2

REPORT INFORMATION
  Report Type: Spontaneous
  Country: US (occurrence: US)
  Receive Date: 20171002
  Receipt Date: 20180511
  Transmission Date: 20180711
  Serious: Yes (Hospitalization, Other)
  Sender: FDA-Public Use
  Company Number: US-PFIZER INC-2017422132

PATIENT
  Sex: Female

DRUGS (3)
  1. LYRICA [Suspect]
     Active Substance: PREGABALIN
     Indication: AUTOIMMUNE HEPATITIS
  2. ARTHROTEC [Suspect]
     Active Substance: DICLOFENAC SODIUM\MISOPROSTOL
     Dosage: UNK
  3. LYRICA [Suspect]
     Active Substance: PREGABALIN
     Indication: TRIGEMINAL NEURALGIA
     Dosage: UNK

REACTIONS (10)
  - Knee arthroplasty [Unknown]
  - Shoulder arthroplasty [Unknown]
  - Cerebrospinal fluid leakage [Unknown]
  - Spinal cord injury [Unknown]
  - Memory impairment [Unknown]
  - Trismus [Unknown]
  - Autoimmune thyroiditis [Unknown]
  - Scoliosis [Unknown]
  - Trigeminal nerve disorder [Not Recovered/Not Resolved]
  - Condition aggravated [Not Recovered/Not Resolved]
